FAERS Safety Report 5946803-3 (Version None)
Quarter: 2008Q4

REPORT INFORMATION
  Report Type: 
  Country: None (occurrence: None)
  Receive Date: 20081107
  Receipt Date: 20081107
  Transmission Date: 20090506
  Serious: Yes (Life-Threatening, Hospitalization)
  Sender: FDA-Public Use
  Company Number: None

PATIENT
  Sex: Female
  Weight: 54.4316 kg

DRUGS (1)
  1. VIOXX [Suspect]
     Indication: BACK PAIN
     Dosage: 25 MG ? 1 EVERY 12 HOURS PO, ONLY TOOK ONE
     Route: 048

REACTIONS (3)
  - APPENDICITIS [None]
  - INFECTION [None]
  - PYREXIA [None]
